FAERS Safety Report 19431761 (Version 1)
Quarter: 2021Q2

REPORT INFORMATION
  Report Type: Spontaneous
  Country: GB (occurrence: GB)
  Receive Date: 20210617
  Receipt Date: 20210617
  Transmission Date: 20210717
  Serious: Yes (Other)
  Sender: FDA-Public Use
  Company Number: GB-TAKEDA-2021TJP040664

PATIENT
  Sex: Male

DRUGS (2)
  1. EPILIM [Suspect]
     Active Substance: VALPROATE SODIUM
     Indication: EPILEPSY
     Dosage: 500 MILLIGRAM, BID 2X/DAY ONE TABLET IN THE MORNING AND ONE IN THE EVENING
     Route: 048
  2. LANSPORAZOLE [Suspect]
     Active Substance: LANSOPRAZOLE
     Indication: HIATUS HERNIA
     Dosage: UNK
     Route: 065

REACTIONS (7)
  - Choking [Unknown]
  - Drug ineffective for unapproved indication [Not Recovered/Not Resolved]
  - Epilepsy [Not Recovered/Not Resolved]
  - Product size issue [Unknown]
  - Off label use [Unknown]
  - Diarrhoea [Unknown]
  - Wrong technique in product usage process [Unknown]

NARRATIVE: CASE EVENT DATE: 20210518
